FAERS Safety Report 5853437-8 (Version None)
Quarter: 2008Q3

REPORT INFORMATION
  Report Type: 
  Country: None (occurrence: None)
  Receive Date: 20080820
  Receipt Date: 20080815
  Transmission Date: 20090109
  Serious: Yes (Death)
  Sender: FDA-Public Use
  Company Number: 2008JP003670

PATIENT
  Age: 2 Year
  Sex: Female
  Weight: 8 kg

DRUGS (10)
  1. FUNGUARD(MICAFUNGIN) INJECTION [Suspect]
     Indication: PNEUMONIA FUNGAL
     Dosage: 30 MG, IV DRIP
     Route: 041
     Dates: start: 20080409, end: 20080417
  2. PRODIF(FOSFLUCONAZOLE) INJECTION [Suspect]
     Dosage: 400 MG, IV NOS
     Route: 042
     Dates: start: 20080408, end: 20080410
  3. VFEND [Suspect]
     Dosage: 50 MG, IV NOS
     Route: 042
     Dates: start: 20080416, end: 20080417
  4. CARBENIN(BETAMIPRON, PANIPENEM) INJECTION [Suspect]
     Dosage: 750 MG, IV NOS
     Route: 042
     Dates: start: 20080407, end: 20080417
  5. BAKTAR (SULFAMETHOXAZOLE, TRIMETHOPRIM) PER ORAL NOS [Concomitant]
  6. AMIKACIN [Concomitant]
  7. MORPHINE HYDROCHLORIDE (MORPHINE HYDROCHLORIDE) PER ORAL NOS [Concomitant]
  8. KYTRIL (GRANISETRON) INJECTION [Concomitant]
  9. ULCERLMIN (SUCRALFATE) PER ORAL NOS [Concomitant]
  10. ALBUMIN (ALBUMIN) INJECTION [Concomitant]

REACTIONS (3)
  - BONE MARROW FAILURE [None]
  - NO THERAPEUTIC RESPONSE [None]
  - PNEUMONIA [None]
